FAERS Safety Report 15867347 (Version 3)
Quarter: 2019Q1

REPORT INFORMATION
  Report Type: Report from Study
  Country: AR (occurrence: AR)
  Receive Date: 20190125
  Receipt Date: 20190205
  Transmission Date: 20190417
  Serious: Yes (Other)
  Sender: FDA-Public Use
  Company Number: AR-BAYER-2019-017972

PATIENT
  Age: 69 Year
  Sex: Male

DRUGS (8)
  1. BISOPROLOL [Concomitant]
     Active Substance: BISOPROLOL
     Dosage: 2.5 MG
  2. DIONDEL [FLECAINIDE ACETATE] [Concomitant]
     Indication: ARRHYTHMIA
     Dosage: 100 MG
  3. XARELTO [Suspect]
     Active Substance: RIVAROXABAN
     Indication: ATRIAL FIBRILLATION
     Dosage: 15 MG, QD
     Route: 048
  4. CLONAZEPAM. [Concomitant]
     Active Substance: CLONAZEPAM
     Dosage: UNK
  5. ASPIRINA PREVENT 100 MG [Suspect]
     Active Substance: ASPIRIN
     Indication: ANTIPLATELET THERAPY
     Dosage: UNK
  6. COSENTYX [Concomitant]
     Active Substance: SECUKINUMAB
     Indication: ANKYLOSING SPONDYLITIS
     Dosage: UNK
  7. XARELTO [Suspect]
     Active Substance: RIVAROXABAN
     Indication: ATRIAL FIBRILLATION
     Dosage: 20 MG, QD
     Route: 048
     Dates: start: 201812
  8. OMEPRAZOL [OMEPRAZOLE] [Concomitant]
     Dosage: UNK

REACTIONS (5)
  - Cerebrovascular accident [None]
  - Haematuria [Recovered/Resolved]
  - Gastrointestinal mucosal disorder [Recovered/Resolved]
  - Incorrect dose administered [None]
  - Colitis [Recovered/Resolved]

NARRATIVE: CASE EVENT DATE: 201812
